FAERS Safety Report 16187732 (Version 1)
Quarter: 2019Q2

REPORT INFORMATION
  Report Type: Spontaneous
  Country: IL (occurrence: IL)
  Receive Date: 20190412
  Receipt Date: 20190412
  Transmission Date: 20190711
  Serious: Yes (Other)
  Sender: FDA-Public Use
  Company Number: IL-ASTRAZENECA-2019SE53795

PATIENT
  Age: 59 Year
  Sex: Female

DRUGS (2)
  1. METFORMIN [Concomitant]
     Active Substance: METFORMIN HYDROCHLORIDE
     Dosage: 850 MG TWO TIMES A DAY
  2. FORXIGA [Suspect]
     Active Substance: DAPAGLIFLOZIN
     Indication: DIABETES MELLITUS
     Dosage: 10.0MG UNKNOWN
     Route: 048

REACTIONS (2)
  - Necrotising fasciitis [Recovered/Resolved]
  - Vulvovaginal pruritus [Recovered/Resolved]
